FAERS Safety Report 4617146-5 (Version None)
Quarter: 2005Q1

REPORT INFORMATION
  Report Type: 
  Country: None (occurrence: None)
  Receive Date: 20050323
  Receipt Date: 20050315
  Transmission Date: 20050727
  Serious: Yes (Other)
  Sender: FDA-Public Use
  Company Number: ES-MERCK-0503ESP00045

PATIENT
  Age: 50 Year
  Sex: Female

DRUGS (1)
  1. COSOPT [Suspect]
     Route: 047

REACTIONS (4)
  - EXCITABILITY [None]
  - EXTRASYSTOLES [None]
  - NERVOUSNESS [None]
  - TACHYCARDIA [None]
